FAERS Safety Report 14676265 (Version 5)
Quarter: 2018Q3

REPORT INFORMATION
  Report Type: Report from Study
  Country: DE (occurrence: DE)
  Receive Date: 20180323
  Receipt Date: 20180726
  Transmission Date: 20181010
  Serious: Yes (Hospitalization)
  Sender: FDA-Public Use
  Company Number: DE-ROCHE-1695697

PATIENT
  Sex: Male

DRUGS (20)
  1. RITUXIMAB. [Suspect]
     Active Substance: RITUXIMAB
     Indication: B-CELL LYMPHOMA
     Dosage: ON 14 DAY, MOST RECENT CYCLE NO 3, THE DATE OF MOST RECENT DOSE OF RITUXIMAB 09/MAR/2016?MOST RECENT
     Route: 042
     Dates: start: 20160125
  2. SERTRALINE [Concomitant]
     Active Substance: SERTRALINE HYDROCHLORIDE
     Route: 065
     Dates: start: 20160105
  3. ROPINIROLE. [Concomitant]
     Active Substance: ROPINIROLE
     Route: 065
     Dates: start: 20160105
  4. LEVETIRACETAM. [Concomitant]
     Active Substance: LEVETIRACETAM
     Route: 065
     Dates: start: 20160105
  5. ACICLOVIR [Concomitant]
     Active Substance: ACYCLOVIR
     Indication: INFECTION PROPHYLAXIS
     Route: 048
     Dates: start: 20160105
  6. TAMSULOSIN [Concomitant]
     Active Substance: TAMSULOSIN
     Route: 065
     Dates: start: 20160105
  7. PEGFILGRASTIM [Suspect]
     Active Substance: PEGFILGRASTIM
     Indication: B-CELL LYMPHOMA
     Dosage: DAILY DOSE: 6 MG MILLIGRAM(S) EVERY 2 WEEK
     Route: 058
     Dates: start: 20160203
  8. LEVODOPA [Concomitant]
     Active Substance: LEVODOPA
     Route: 065
     Dates: start: 20160105
  9. CIPROFLOXACIN. [Concomitant]
     Active Substance: CIPROFLOXACIN
     Route: 065
     Dates: start: 20160105
  10. CYCLOPHOSPHAMIDE. [Suspect]
     Active Substance: CYCLOPHOSPHAMIDE
     Indication: B-CELL LYMPHOMA
     Dosage: ON 10/MAR/2016, RECEIVED THE MOST RECENT CYCLE OF CHOP PRIOR TO SAE
     Route: 042
     Dates: start: 20160203
  11. SULFAMETHOXAZOLE/TRIMETHOPRIM [Concomitant]
     Active Substance: SULFAMETHOXAZOLE\TRIMETHOPRIM
     Route: 065
     Dates: start: 20160105
  12. DOXORUBICINE [Suspect]
     Active Substance: DOXORUBICIN
     Indication: B-CELL LYMPHOMA
     Dosage: ON 10/MAR/2016, RECEIVED THE MOST RECENT CYCLE OF CHOP PRIOR TO SAE
     Route: 042
     Dates: start: 20160203
  13. PANTOPRAZOLE [Concomitant]
     Active Substance: PANTOPRAZOLE
     Route: 065
     Dates: start: 20160105
  14. AMLODIPINE [Concomitant]
     Active Substance: AMLODIPINE BESYLATE
     Route: 065
     Dates: start: 20160105
  15. METOPROLOL. [Concomitant]
     Active Substance: METOPROLOL
     Route: 065
     Dates: start: 20160105
  16. METHOTREXATE DISODIUM [Suspect]
     Active Substance: METHOTREXATE SODIUM
     Indication: B-CELL LYMPHOMA
     Dosage: 50% DOSE REDUCTION DUE TO GFR INITIAL 58ML/MIN?MOST RECENT DOSE : 12/JAN/2016
     Route: 042
     Dates: start: 20160112
  17. PREDNISOLONE. [Suspect]
     Active Substance: PREDNISOLONE
     Indication: B-CELL LYMPHOMA
     Dosage: ON 10/MAR/2016, RECEIVED THE MOST RECENT CYCLE OF CHOP PRIOR TO SAE
     Route: 048
     Dates: start: 20160203
  18. LEUCOVORIN. [Suspect]
     Active Substance: LEUCOVORIN
     Indication: B-CELL LYMPHOMA
     Dosage: 30 MG/250 ML, 4 TIMES IN DAY. ON 10/MAR/2016, RECEIVED THE MOST RECENT CYCLE OF CHOP PRIOR TO SAE.
     Route: 042
     Dates: start: 20160114
  19. VINCRISTINE [Suspect]
     Active Substance: VINCRISTINE
     Indication: B-CELL LYMPHOMA
     Dosage: DAILY DOSE: 3.91 MG MILLIGRAM(S) EVERY 2 WEEK
     Route: 042
     Dates: start: 20160203
  20. COLECALCIFEROL [Concomitant]
     Active Substance: CHOLECALCIFEROL
     Route: 065
     Dates: start: 20160105

REACTIONS (4)
  - Urinary tract infection [Recovered/Resolved]
  - Pneumonia [Recovered/Resolved]
  - Urinary tract obstruction [Recovered/Resolved]
  - Acute kidney injury [Recovered/Resolved]

NARRATIVE: CASE EVENT DATE: 20160114
